FAERS Safety Report 5969701-8 (Version None)
Quarter: 2008Q4

REPORT INFORMATION
  Report Type: 
  Country: None (occurrence: None)
  Receive Date: 20081126
  Receipt Date: 20081118
  Transmission Date: 20090506
  Serious: Yes (Other)
  Sender: FDA-Public Use
  Company Number: US-PFIZER INC-2008077950

PATIENT
  Sex: Male
  Weight: 90.909 kg

DRUGS (15)
  1. DETROL LA [Suspect]
     Indication: URINARY TRACT DISORDER
     Route: 048
     Dates: start: 20080701, end: 20080901
  2. DETROL LA [Suspect]
     Indication: URINARY TRACT INFECTION
  3. OXYBUTYNIN CHLORIDE [Suspect]
     Indication: URINARY TRACT DISORDER
     Route: 048
     Dates: start: 20080101, end: 20080908
  4. METFORMIN HCL [Concomitant]
  5. TAMSULOSIN HCL [Concomitant]
  6. DOXAZOSIN MESYLATE [Concomitant]
  7. CASODEX [Concomitant]
  8. MIRAPEX [Concomitant]
  9. EFFEXOR [Concomitant]
  10. GLYBURIDE [Concomitant]
  11. ALBUTEROL [Concomitant]
  12. FISH OIL [Concomitant]
  13. CALCIUM [Concomitant]
  14. VITAMINS [Concomitant]
  15. ACETYLSALICYLIC ACID SRT [Concomitant]

REACTIONS (4)
  - BLOOD PRESSURE DECREASED [None]
  - CONFUSIONAL STATE [None]
  - DISORIENTATION [None]
  - URINARY RETENTION [None]
